FAERS Safety Report 4994281-3 (Version None)
Quarter: 2006Q1

REPORT INFORMATION
  Report Type: 
  Country: None (occurrence: None)
  Receive Date: 20060314
  Receipt Date: 20050805
  Transmission Date: 20060701
  Serious: Yes (Other)
  Sender: FDA-Public Use
  Company Number: 200512380BCC

PATIENT
  Age: 60 Year
  Sex: Female
  Weight: 95.2554 kg

DRUGS (3)
  1. ALEVE (CAPLET) [Suspect]
     Indication: SHOULDER PAIN
     Dosage: 440 MG, TOTAL DAILY, ORAL
     Route: 048
     Dates: start: 20060301
  2. NEXIUM [Concomitant]
  3. TAVATINT [Concomitant]

REACTIONS (5)
  - DIARRHOEA [None]
  - FAECES DISCOLOURED [None]
  - HAEMATOCHEZIA [None]
  - HEADACHE [None]
  - RECTAL HAEMORRHAGE [None]
